FAERS Safety Report 8801947 (Version 1)
Quarter: 2012Q4

REPORT INFORMATION
  Report Type: 
  Country: US (occurrence: US)
  Receive Date: 20120921
  Receipt Date: 20120921
  Transmission Date: 20130627
  Serious: No
  Sender: FDA-Public Use
  Company Number: US-PFIZER INC-2012228523

PATIENT
  Sex: Female

DRUGS (2)
  1. REVATIO [Suspect]
     Indication: PULMONARY HYPERTENSION
     Dosage: UNK, 2x/day
  2. WARFARIN [Suspect]
     Dosage: UNK

REACTIONS (2)
  - Musculoskeletal disorder [Unknown]
  - Blood disorder [Unknown]
